FAERS Safety Report 12705736 (Version 1)
Quarter: 2016Q3

REPORT INFORMATION
  Report Type: Spontaneous
  Country: US (occurrence: None)
  Receive Date: 20160831
  Receipt Date: 20160831
  Transmission Date: 20161109
  Serious: Yes (Life-Threatening, Hospitalization, Disabling)
  Sender: FDA-Public Use
  Company Number: None

PATIENT
  Age: 67 Year
  Sex: Male
  Weight: 117.94 kg

DRUGS (2)
  1. PRAVASTATIN (PRAVOCOL) [Suspect]
     Active Substance: PRAVASTATIN
     Indication: BLOOD CHOLESTEROL INCREASED
     Dosage: PRAVASTATIN (PRAVOCOL) 1 PER DAY 90
     Route: 048
     Dates: start: 20141117
  2. RANITIDINE. [Concomitant]
     Active Substance: RANITIDINE

REACTIONS (21)
  - Pyrexia [None]
  - Myalgia [None]
  - Jaundice [None]
  - Arthralgia [None]
  - Chills [None]
  - Dyspnoea [None]
  - Pruritus [None]
  - Visual impairment [None]
  - Blood bilirubin increased [None]
  - Fatigue [None]
  - Chromaturia [None]
  - Dyspepsia [None]
  - Faeces pale [None]
  - Amnesia [None]
  - Decreased appetite [None]
  - Epistaxis [None]
  - Nausea [None]
  - Back pain [None]
  - Chest pain [None]
  - Diarrhoea [None]
  - Urticaria [None]

NARRATIVE: CASE EVENT DATE: 20141117
